FAERS Safety Report 10487726 (Version 1)
Quarter: 2014Q3

REPORT INFORMATION
  Report Type: Spontaneous
  Country: US (occurrence: None)
  Receive Date: 20140908
  Receipt Date: 20140908
  Transmission Date: 20150326
  Serious: Yes (Other)
  Sender: FDA-Public Use
  Company Number: 401736

PATIENT
  Age: 62 Year
  Sex: Female
  Weight: 117.9 kg

DRUGS (2)
  1. METFORMIN [Concomitant]
     Active Substance: METFORMIN HYDROCHLORIDE
  2. VICTOZA [Suspect]
     Active Substance: LIRAGLUTIDE
     Indication: TYPE 2 DIABETES MELLITUS
     Route: 058
     Dates: start: 20140217, end: 20140217

REACTIONS (2)
  - Vomiting [None]
  - Nausea [None]

NARRATIVE: CASE EVENT DATE: 20140217
